FAERS Safety Report 19751415 (Version 2)
Quarter: 2021Q3

REPORT INFORMATION
  Report Type: Spontaneous
  Country: AR (occurrence: AR)
  Receive Date: 20210826
  Receipt Date: 20210831
  Transmission Date: 20211014
  Serious: Yes (Hospitalization, Congenital Anomaly, Other)
  Sender: FDA-Public Use
  Company Number: AR-ASTRAZENECA-2021A695301

PATIENT
  Age: 24714 Day
  Sex: Male
  Weight: 89 kg

DRUGS (7)
  1. NASAL FLUTICASONE [Concomitant]
  2. SALBUTAMOL [Concomitant]
     Active Substance: ALBUTEROL
  3. MONTELUKAST [Concomitant]
     Active Substance: MONTELUKAST SODIUM
  4. FASENRA [Suspect]
     Active Substance: BENRALIZUMAB
     Indication: ASTHMA
     Dosage: UNKNOWN UNKNOWN
     Route: 058
     Dates: start: 202103
  5. BUDESONIDE/FORMOTEROL [Concomitant]
     Active Substance: BUDESONIDE\FORMOTEROL
     Dosage: 160 / 4.5 EVERY 12 HOURS
  6. PANTOPRAZOLE [Concomitant]
     Active Substance: PANTOPRAZOLE
  7. IPRATROPIUM [Concomitant]
     Active Substance: IPRATROPIUM
     Dosage: EVERY 8 HOURS

REACTIONS (5)
  - Eyelid oedema [Unknown]
  - Neuropathy peripheral [Unknown]
  - Rash pruritic [Unknown]
  - Paraesthesia [Unknown]
  - Proctitis [Recovering/Resolving]

NARRATIVE: CASE EVENT DATE: 20210705
